FAERS Safety Report 4495980-2 (Version None)
Quarter: 2004Q4

REPORT INFORMATION
  Report Type: 
  Country: None (occurrence: None)
  Receive Date: 20041108
  Receipt Date: 20041012
  Transmission Date: 20050328
  Serious: Yes (Death, Hospitalization)
  Sender: FDA-Public Use
  Company Number: TR-NOVOPROD-239825

PATIENT
  Age: 36 Day
  Sex: Female
  Weight: 5 kg

DRUGS (6)
  1. NOVOSEVEN [Suspect]
     Indication: PULMONARY HAEMORRHAGE
     Dosage: 2 X 30 UG/KG Q 11 H
     Route: 042
     Dates: start: 20041001, end: 20041001
  2. CEFTRIAXONE SODIUM [Concomitant]
     Dosage: 75 MG/KG, QD
     Route: 042
     Dates: start: 20040926, end: 20041002
  3. VANCOMYCIN [Concomitant]
     Dosage: 40 MG/KG, QD
     Route: 042
     Dates: start: 20040926, end: 20041002
  4. AMIKACIN [Concomitant]
     Dosage: 15 MG/KG, QD
     Route: 042
     Dates: start: 20040926, end: 20041002
  5. DIGOXIN [Concomitant]
     Dosage: .04 MG/KG, QD
     Route: 048
     Dates: start: 20040926, end: 20041002
  6. SPIRONOLACTONE [Concomitant]
     Dosage: 2 MG/KG, QD
     Route: 048
     Dates: start: 20040928, end: 20041002

REACTIONS (5)
  - ACTIVATED PARTIAL THROMBOPLASTIN TIME PROLONGED [None]
  - BACTERIAL INFECTION [None]
  - HYPOTHERMIA [None]
  - PROTHROMBIN TIME ABNORMAL [None]
  - PULMONARY HAEMORRHAGE [None]
